FAERS Safety Report 9333501 (Version 1)
Quarter: 2013Q2

REPORT INFORMATION
  Report Type: Spontaneous
  Country: US (occurrence: US)
  Receive Date: 20130606
  Receipt Date: 20130606
  Transmission Date: 20140414
  Serious: Yes (Hospitalization)
  Sender: FDA-Public Use
  Company Number: US-AMGEN-USASP2013003129

PATIENT
  Sex: Male

DRUGS (4)
  1. XGEVA [Suspect]
     Indication: PROSTATE CANCER METASTATIC
     Dosage: 120 MG, Q4WK
     Dates: end: 20121120
  2. XGEVA [Suspect]
     Indication: METASTASES TO BONE
  3. PROVENGE [Concomitant]
  4. TAXOTERE [Concomitant]

REACTIONS (1)
  - Hypocalcaemia [Not Recovered/Not Resolved]
